FAERS Safety Report 7220018-3 (Version None)
Quarter: 2011Q1

REPORT INFORMATION
  Report Type: 
  Country: None (occurrence: None)
  Receive Date: 20110111
  Receipt Date: 20101222
  Transmission Date: 20110831
  Serious: Yes (Hospitalization)
  Sender: FDA-Public Use
  Company Number: JP-AMGEN-JPNCT2011001527

PATIENT

DRUGS (13)
  1. PANITUMUMAB [Suspect]
     Indication: COLORECTAL CANCER
     Dosage: UNK
     Route: 041
     Dates: start: 20100824, end: 20101207
  2. CETUXIMAB [Suspect]
     Indication: COLORECTAL CANCER
     Dosage: UNK
     Route: 041
     Dates: start: 20091201, end: 20100801
  3. METHYCOBAL [Concomitant]
     Route: 048
  4. KOBALNON [Concomitant]
     Route: 048
  5. LAC B N [Concomitant]
     Route: 048
  6. LANSOPRAZOLE [Concomitant]
     Route: 048
  7. PURSENNID [Concomitant]
     Route: 048
  8. CORTICOSTEROIDS [Concomitant]
     Indication: PROPHYLAXIS
     Route: 065
  9. VOWLO [Concomitant]
     Route: 048
  10. GASCON [Concomitant]
     Route: 048
  11. LOBU [Concomitant]
     Route: 048
  12. AMLODIPINE [Concomitant]
     Route: 048
  13. ANTIHISTAMINES [Concomitant]
     Indication: PROPHYLAXIS
     Route: 065

REACTIONS (7)
  - BLOOD MAGNESIUM DECREASED [None]
  - BLOOD CALCIUM DECREASED [None]
  - PRURITUS [None]
  - PARONYCHIA [None]
  - MYOCARDIAL INFARCTION [None]
  - DERMATITIS ACNEIFORM [None]
  - LOWER GASTROINTESTINAL HAEMORRHAGE [None]
